FAERS Safety Report 7678886 (Version 7)
Quarter: 2014Q2

REPORT INFORMATION
  Report Type: Spontaneous
  Country: DK (occurrence: DK)
  Receive Date: 20101122
  Receipt Date: 20140414
  Transmission Date: 20141212
  Serious: Yes (Hospitalization, Disabling)
  Sender: FDA-Public Use
  Company Number: DK-JNJFOC-20101104589

PATIENT
  Age: 16 Year
  Sex: Male
  Weight: 66 kg

DRUGS (2)
  1. REMICADE [Suspect]
     Indication: CROHN^S DISEASE
     Route: 042
     Dates: start: 20091221, end: 20100923
  2. REMICADE [Suspect]
     Indication: CROHN^S DISEASE
     Route: 042
     Dates: start: 20090909

REACTIONS (6)
  - Cognitive disorder [Recovering/Resolving]
  - Encephalitis [Recovered/Resolved with Sequelae]
  - Disturbance in attention [Unknown]
  - Memory impairment [Unknown]
  - Hyperacusis [Unknown]
  - Fatigue [Unknown]
